FAERS Safety Report 4428448-X (Version None)
Quarter: 2004Q3

REPORT INFORMATION
  Report Type: 
  Country: None (occurrence: None)
  Receive Date: 20040818
  Receipt Date: 20040809
  Transmission Date: 20050211
  Serious: Yes (Death, Hospitalization)
  Sender: FDA-Public Use
  Company Number: PHBS2004BR10502

PATIENT
  Age: 78 Year
  Sex: Male
  Weight: 45 kg

DRUGS (1)
  1. FORASEQ [Suspect]
     Indication: EMPHYSEMA

REACTIONS (2)
  - EMPHYSEMA [None]
  - PLEURAL EFFUSION [None]
